FAERS Safety Report 12474963 (Version 2)
Quarter: 2016Q3

REPORT INFORMATION
  Report Type: Spontaneous
  Country: DE (occurrence: DE)
  Receive Date: 20160617
  Receipt Date: 20160704
  Transmission Date: 20161109
  Serious: Yes (Hospitalization)
  Sender: FDA-Public Use
  Company Number: DE-ACCORD-041509

PATIENT
  Age: 69 Year
  Sex: Male

DRUGS (9)
  1. PREDNISOLONE. [Suspect]
     Active Substance: PREDNISOLONE
     Indication: NON-HODGKIN^S LYMPHOMA
     Dosage: SIX CYCLES
  2. CYCLOPHOSPHAMIDE/CYCLOPHOSPHAMIDE MONOHYDRATE [Suspect]
     Active Substance: CYCLOPHOSPHAMIDE
     Indication: NON-HODGKIN^S LYMPHOMA
     Dosage: SIX CYCLES
  3. CYTARABINE/CYTARABINE HYDROCHLORIDE/CYTARABINE OCFOSFATE [Suspect]
     Active Substance: CYTARABINE
     Indication: NON-HODGKIN^S LYMPHOMA
  4. VINCRISTINE [Suspect]
     Active Substance: VINCRISTINE
     Indication: NON-HODGKIN^S LYMPHOMA
     Dosage: SIX CYCLES
  5. ETOPOSIDE. [Suspect]
     Active Substance: ETOPOSIDE
     Indication: NON-HODGKIN^S LYMPHOMA
  6. DOXORUBICIN [Suspect]
     Active Substance: DOXORUBICIN
     Indication: NON-HODGKIN^S LYMPHOMA
     Dosage: SIX CYCLES
  7. THIOTEPA. [Suspect]
     Active Substance: THIOTEPA
     Indication: NON-HODGKIN^S LYMPHOMA
  8. MELPHALAN [Suspect]
     Active Substance: MELPHALAN
     Indication: NON-HODGKIN^S LYMPHOMA
  9. RITUXIMAB [Suspect]
     Active Substance: RITUXIMAB
     Indication: NON-HODGKIN^S LYMPHOMA
     Dosage: SIX CYCLES

REACTIONS (17)
  - Off label use [Unknown]
  - Neutropenia [None]
  - Mucosal inflammation [Unknown]
  - Diarrhoea [Unknown]
  - Weight decreased [Unknown]
  - Tumour lysis syndrome [None]
  - Staphylococcus test positive [None]
  - Catheter site infection [Recovered/Resolved]
  - Herpes simplex [Recovered/Resolved]
  - Decreased appetite [Unknown]
  - Food contamination [None]
  - Stomatitis [Recovered/Resolved]
  - Escherichia test positive [None]
  - Acute kidney injury [Unknown]
  - Cough [Unknown]
  - Dyspnoea [Unknown]
  - Aspergillus test positive [None]
